FAERS Safety Report 15606464 (Version 1)
Quarter: 2018Q4

REPORT INFORMATION
  Report Type: Report from Study
  Country: CA (occurrence: CA)
  Receive Date: 20181112
  Receipt Date: 20181112
  Transmission Date: 20190205
  Serious: Yes (Hospitalization, Other)
  Sender: FDA-Public Use
  Company Number: CA-IPSEN BIOPHARMACEUTICALS, INC.-2018-16831

PATIENT
  Sex: Male

DRUGS (1)
  1. SOMATULINE AUTOGEL 120 MG [Suspect]
     Active Substance: LANREOTIDE ACETATE
     Indication: NEUROENDOCRINE TUMOUR
     Dates: start: 20180309, end: 20181001

REACTIONS (1)
  - Hospitalisation [Not Recovered/Not Resolved]
